FAERS Safety Report 25157832 (Version 2)
Quarter: 2025Q3

REPORT INFORMATION
  Report Type: Spontaneous
  Country: US (occurrence: US)
  Receive Date: 20250403
  Receipt Date: 20250730
  Transmission Date: 20251021
  Serious: Yes (Other)
  Sender: PADAGIS
  Company Number: US-PADAGIS-2025PAD00358

PATIENT

DRUGS (5)
  1. MUPIROCIN [Suspect]
     Active Substance: MUPIROCIN
     Indication: Systemic lupus erythematosus
     Route: 065
  2. HYDROCORTISONE [Suspect]
     Active Substance: HYDROCORTISONE
     Indication: Systemic lupus erythematosus
     Route: 061
  3. PREDNISONE [Suspect]
     Active Substance: PREDNISONE
     Indication: Systemic lupus erythematosus
     Route: 048
  4. AMOXICILLIN\CLAVULANIC ACID [Suspect]
     Active Substance: AMOXICILLIN\CLAVULANIC ACID
     Indication: Systemic lupus erythematosus
     Route: 065
  5. AMOXICILLIN\CLAVULANIC ACID [Suspect]
     Active Substance: AMOXICILLIN\CLAVULANIC ACID
     Indication: Antibiotic therapy

REACTIONS (2)
  - Drug ineffective [Unknown]
  - Product use in unapproved indication [Unknown]
